FAERS Safety Report 16837302 (Version 1)
Quarter: 2019Q3

REPORT INFORMATION
  Report Type: Spontaneous
  Country: US (occurrence: US)
  Receive Date: 20190923
  Receipt Date: 20190923
  Transmission Date: 20191005
  Serious: Yes (Other)
  Sender: FDA-Public Use
  Company Number: US-SUN PHARMACEUTICAL INDUSTRIES LTD-2019R1-204755

PATIENT
  Age: 71 Year
  Sex: Female

DRUGS (1)
  1. DECITABINE. [Suspect]
     Active Substance: DECITABINE
     Indication: MYELOID LEUKAEMIA
     Dosage: COMPLETING 10 CYCLES OF DECITABINE
     Route: 065

REACTIONS (2)
  - Cardiac failure [Not Recovered/Not Resolved]
  - Cardiomyopathy [Recovering/Resolving]
